FAERS Safety Report 6713775-3 (Version None)
Quarter: 2010Q2

REPORT INFORMATION
  Report Type: 
  Country: None (occurrence: None)
  Receive Date: 20100504
  Receipt Date: 20100420
  Transmission Date: 20101027
  Serious: Yes (Hospitalization, Other)
  Sender: FDA-Public Use
  Company Number: PD 133

PATIENT
  Age: 66 Year
  Sex: Male

DRUGS (1)
  1. CETIRIZINE 10MG (MFR UNKNOWN) [Suspect]
     Dosage: 10 MG/DAY ORAL
     Route: 048

REACTIONS (1)
  - HEPATITIS [None]
